FAERS Safety Report 5857226-X (Version None)
Quarter: 2008Q3

REPORT INFORMATION
  Report Type: 
  Country: None (occurrence: None)
  Receive Date: 20080825
  Receipt Date: 20080813
  Transmission Date: 20090109
  Serious: Yes (Death, Other)
  Sender: FDA-Public Use
  Company Number: CH-GENENTECH-263372

PATIENT
  Sex: Male

DRUGS (12)
  1. MABTHERA [Suspect]
     Indication: CHRONIC LYMPHOCYTIC LEUKAEMIA
     Dosage: 700 MG, SINGLE
     Route: 042
     Dates: start: 20080415, end: 20080501
  2. FLUDARABINE [Concomitant]
     Indication: DRUG USE FOR UNKNOWN INDICATION
     Dosage: UNK
     Dates: start: 20080415
  3. CYCLOPHOSPHAMIDE [Concomitant]
     Indication: DRUG USE FOR UNKNOWN INDICATION
     Dosage: UNK
     Dates: start: 20080415
  4. TAXOTERE [Concomitant]
     Indication: DRUG USE FOR UNKNOWN INDICATION
  5. SPIRICORT [Concomitant]
     Indication: DRUG USE FOR UNKNOWN INDICATION
  6. ZOMETA [Concomitant]
     Indication: DRUG USE FOR UNKNOWN INDICATION
  7. CLEMASTINE FUMARATE [Concomitant]
     Indication: PREMEDICATION
  8. ACETAMINOPHEN [Concomitant]
     Indication: PREMEDICATION
  9. SOLU-MEDROL [Concomitant]
     Indication: PREMEDICATION
  10. ESOMEPRAZOLE [Concomitant]
     Indication: DRUG USE FOR UNKNOWN INDICATION
  11. NADROPARIN [Concomitant]
     Indication: DRUG USE FOR UNKNOWN INDICATION
  12. TROPISETRON [Concomitant]
     Indication: PREMEDICATION
     Dosage: 5 MG, UNK

REACTIONS (3)
  - PERICARDITIS [None]
  - PLEURAL EFFUSION [None]
  - PNEUMONIA [None]
